FAERS Safety Report 8931453 (Version 2)
Quarter: 2013Q2

REPORT INFORMATION
  Report Type: Spontaneous
  Country: US (occurrence: US)
  Receive Date: 20121128
  Receipt Date: 20130424
  Transmission Date: 20140414
  Serious: No
  Sender: FDA-Public Use
  Company Number: US-ASTRAZENECA-2012SE86330

PATIENT
  Age: 50 Year
  Sex: Female
  Weight: 120.2 kg

DRUGS (13)
  1. NEXIUM [Suspect]
     Indication: GASTROOESOPHAGEAL REFLUX DISEASE
     Route: 048
     Dates: start: 2009
  2. OMEPRAZOLE [Suspect]
     Route: 048
  3. BACLOFEN [Concomitant]
  4. METHADONE [Concomitant]
  5. OXYCONTIN [Concomitant]
  6. NEUROTONIN [Concomitant]
  7. CYMBALTA [Concomitant]
  8. CELEXA [Concomitant]
  9. NORVASC [Concomitant]
  10. SIMVASTATIN [Concomitant]
  11. MULTIVITAMIN [Concomitant]
  12. VITAMIN D [Concomitant]
  13. FAMOTADINE [Concomitant]

REACTIONS (8)
  - Gastrooesophageal reflux disease [Not Recovered/Not Resolved]
  - Dyspnoea [Not Recovered/Not Resolved]
  - Carpal tunnel syndrome [Not Recovered/Not Resolved]
  - Anaemia [Unknown]
  - Vitamin D decreased [Unknown]
  - Vomiting [Not Recovered/Not Resolved]
  - Intentional drug misuse [Unknown]
  - Drug ineffective [Unknown]
